FAERS Safety Report 5427180-3 (Version None)
Quarter: 2007Q3

REPORT INFORMATION
  Report Type: 
  Country: None (occurrence: None)
  Receive Date: 20070828
  Receipt Date: 20070820
  Transmission Date: 20080115
  Serious: Yes (Other)
  Sender: FDA-Public Use
  Company Number: GB-JNJFOC-20070804083

PATIENT
  Sex: Female
  Weight: 48 kg

DRUGS (9)
  1. INFLIXIMAB [Suspect]
     Indication: RHEUMATOID ARTHRITIS
     Route: 042
  2. METHOTREXATE [Concomitant]
  3. ALENDRONATE SODIUM [Concomitant]
  4. CALCICHEW [Concomitant]
  5. CELECOXIB [Concomitant]
  6. DISTALGESIC [Concomitant]
  7. FOLIC ACID [Concomitant]
  8. OMEPRAZOLE [Concomitant]
  9. TIBOLONE [Concomitant]

REACTIONS (2)
  - INTERVERTEBRAL DISC DISORDER [None]
  - NERVE ROOT COMPRESSION [None]
